FAERS Safety Report 14685933 (Version 1)
Quarter: 2018Q1

REPORT INFORMATION
  Report Type: Spontaneous
  Country: US (occurrence: US)
  Receive Date: 20180327
  Receipt Date: 20180327
  Transmission Date: 20180509
  Serious: Yes (Disabling, Other)
  Sender: FDA-Public Use
  Company Number: None

PATIENT
  Age: 70 Year
  Sex: Female

DRUGS (9)
  1. METFORMIN [Concomitant]
     Active Substance: METFORMIN HYDROCHLORIDE
  2. VITAMIN D3 [Concomitant]
     Active Substance: CHOLECALCIFEROL
  3. CLOPIDOGREL [Suspect]
     Active Substance: CLOPIDOGREL BISULFATE
     Indication: THROMBOSIS PROPHYLAXIS
     Dates: start: 201704
  4. AMLODIPINE [Concomitant]
     Active Substance: AMLODIPINE BESYLATE
  5. CLOPIDOGREL [Concomitant]
     Active Substance: CLOPIDOGREL BISULFATE
  6. GLIPIZIDE. [Concomitant]
     Active Substance: GLIPIZIDE
  7. HYDROCHLOROTHIAZIDE. [Concomitant]
     Active Substance: HYDROCHLOROTHIAZIDE
  8. ASPIRIN. [Concomitant]
     Active Substance: ASPIRIN
  9. FLAXSEED [Concomitant]
     Active Substance: FLAX SEED

REACTIONS (15)
  - Product label issue [None]
  - Lip blister [None]
  - Asthenia [None]
  - Drug dispensing error [None]
  - Stress [None]
  - Increased tendency to bruise [None]
  - Product use issue [None]
  - Blister [None]
  - Lymphadenopathy [None]
  - Myalgia [None]
  - Oral mucosal blistering [None]
  - Pain in extremity [None]
  - Pruritus [None]
  - Pain [None]
  - Gait disturbance [None]

NARRATIVE: CASE EVENT DATE: 201708
